FAERS Safety Report 5391179-6 (Version None)
Quarter: 2007Q3

REPORT INFORMATION
  Report Type: 
  Country: None (occurrence: None)
  Receive Date: 20070719
  Receipt Date: 20070709
  Transmission Date: 20080115
  Serious: Yes (Hospitalization)
  Sender: FDA-Public Use
  Company Number: PHBS2007HK11706

PATIENT
  Age: 45 Year
  Sex: Female
  Weight: 60 kg

DRUGS (6)
  1. METOPROLOL TARTRATE [Suspect]
     Dosage: 4200 MG, ONCE/SINGLE
     Dates: start: 20060901
  2. NIFEDIPINE [Suspect]
     Dosage: 1120 MG, ONCE/SINGLE
     Dates: start: 20060901
  3. PRAZOSIN HCL [Suspect]
     Dosage: 84 MG, ONCE/SINGLE
     Dates: start: 20060901
  4. GLICLAZIDE [Suspect]
     Dosage: 2240 UNK, ONCE/SINGLE
     Dates: start: 20060901
  5. FLUVASTATIN SODIUM [Suspect]
     Dosage: 280 MG, ONCE/SINGLE
     Dates: start: 20060901
  6. HYPNOTICS AND SEDATIVES [Suspect]
     Dosage: 30 TABLETS/DAY
     Route: 048
     Dates: start: 20060901

REACTIONS (17)
  - ATRIOVENTRICULAR BLOCK FIRST DEGREE [None]
  - BLOOD CALCIUM DECREASED [None]
  - BLOOD CREATININE INCREASED [None]
  - BLOOD GLUCOSE INCREASED [None]
  - BLOOD PRESSURE DECREASED [None]
  - BLOOD UREA INCREASED [None]
  - DIZZINESS [None]
  - ELECTROCARDIOGRAM PR SHORTENED [None]
  - GLASGOW COMA SCALE ABNORMAL [None]
  - HEART RATE DECREASED [None]
  - INTENTIONAL OVERDOSE [None]
  - LOSS OF CONSCIOUSNESS [None]
  - RENAL IMPAIRMENT [None]
  - RESPIRATORY RATE DECREASED [None]
  - SINUS BRADYCARDIA [None]
  - SOMNOLENCE [None]
  - VOMITING [None]
